FAERS Safety Report 5556342-X (Version None)
Quarter: 2007Q4

REPORT INFORMATION
  Report Type: 
  Country: None (occurrence: None)
  Receive Date: 20071213
  Receipt Date: 20070910
  Transmission Date: 20080405
  Serious: No
  Sender: FDA-Public Use
  Company Number: US-AMGEN-KDL239509

PATIENT
  Sex: Female

DRUGS (2)
  1. ENBREL [Suspect]
     Indication: PSORIASIS
     Route: 058
     Dates: start: 20070623
  2. METHOTREXATE [Concomitant]
     Route: 048
     Dates: start: 20070827

REACTIONS (6)
  - LOCALISED INFECTION [None]
  - PSORIASIS [None]
  - PUSTULAR PSORIASIS [None]
  - STAPHYLOCOCCAL INFECTION [None]
  - SUNBURN [None]
  - TENDONITIS [None]
